FAERS Safety Report 15291077 (Version 2)
Quarter: 2018Q3

REPORT INFORMATION
  Report Type: Spontaneous
  Country: US (occurrence: US)
  Receive Date: 20180817
  Receipt Date: 20180905
  Transmission Date: 20181010
  Serious: No
  Sender: FDA-Public Use
  Company Number: US-MERZ NORTH AMERICA, INC.-18MRZ-00419

PATIENT
  Sex: Female

DRUGS (1)
  1. XEOMIN [Suspect]
     Active Substance: INCOBOTULINUMTOXINA
     Indication: SKIN WRINKLING
     Dates: start: 20180813, end: 20180813

REACTIONS (4)
  - Vomiting [Recovered/Resolved]
  - Chills [Recovered/Resolved]
  - Impaired work ability [Recovered/Resolved]
  - Nausea [Recovered/Resolved]
